FAERS Safety Report 11269728 (Version 1)
Quarter: 2015Q3

REPORT INFORMATION
  Report Type: Spontaneous
  Country: US (occurrence: US)
  Receive Date: 20150714
  Receipt Date: 20150714
  Transmission Date: 20151125
  Serious: Yes (Hospitalization, Other)
  Sender: FDA-Public Use
  Company Number: US-NOVOPROD-456239

PATIENT
  Age: 66 Year
  Sex: Female
  Weight: 107.3 kg

DRUGS (4)
  1. GLIPIZIDE. [Concomitant]
     Active Substance: GLIPIZIDE
     Indication: TYPE 1 DIABETES MELLITUS
  2. LEVEMIR [Suspect]
     Active Substance: INSULIN DETEMIR
     Dosage: 60 U, QD
     Route: 058
     Dates: start: 201503
  3. LEVEMIR [Suspect]
     Active Substance: INSULIN DETEMIR
     Indication: TYPE 1 DIABETES MELLITUS
     Dosage: 30 U, QD
     Route: 058
     Dates: end: 201503
  4. JANUVIA [Concomitant]
     Active Substance: SITAGLIPTIN PHOSPHATE
     Indication: TYPE 1 DIABETES MELLITUS

REACTIONS (2)
  - Haemoglobin decreased [Recovered/Resolved]
  - Blood glucose increased [Not Recovered/Not Resolved]

NARRATIVE: CASE EVENT DATE: 201502
